FAERS Safety Report 5602312-2 (Version None)
Quarter: 2008Q1

REPORT INFORMATION
  Report Type: 
  Country: None (occurrence: None)
  Receive Date: 20080125
  Receipt Date: 20080118
  Transmission Date: 20080703
  Serious: Yes (Death, Hospitalization, Other)
  Sender: FDA-Public Use
  Company Number: US-ROCHE-542015

PATIENT
  Age: 62 Year
  Sex: Female

DRUGS (6)
  1. XELODA [Suspect]
     Indication: BREAST CANCER
     Dosage: THE PATIETN WAS CYCLING OFF THE XELODA AND WILL BE RESTARTING IT AT 2 TABLETS TWICE PER DAY.
     Route: 048
     Dates: start: 20070508
  2. TYKERB [Suspect]
     Indication: BREAST CANCER
     Dosage: THE PATIENT WAS TAKING TYKERB AT VARIABLE DOSE TWICE PER DAY. THREE TABLETS IN THE MORNING AND 2 TA+
     Route: 048
     Dates: start: 20070508
  3. ACIPHEX [Concomitant]
  4. PAROXETINE [Concomitant]
  5. IMODIUM [Concomitant]
  6. UNSPECIFIED MEDICATION [Concomitant]
     Dosage: THE PATIENT WAS ON UNSPECIFIED INTRAVENOUS FLUIDS.
     Route: 042

REACTIONS (3)
  - DEATH [None]
  - DIARRHOEA [None]
  - METASTASES TO CENTRAL NERVOUS SYSTEM [None]
